FAERS Safety Report 17017740 (Version 5)
Quarter: 2021Q4

REPORT INFORMATION
  Report Type: Report from Study
  Country: US (occurrence: US)
  Receive Date: 20191111
  Receipt Date: 20211112
  Transmission Date: 20220303
  Serious: Yes (Hospitalization, Other)
  Sender: FDA-Public Use
  Company Number: US-OTSUKA-2019_038029

PATIENT
  Sex: Female

DRUGS (5)
  1. TOLVAPTAN [Suspect]
     Active Substance: TOLVAPTAN
     Indication: Hyponatraemia
     Dosage: 15 MG, QD
     Route: 048
     Dates: start: 2019
  2. TOLVAPTAN [Suspect]
     Active Substance: TOLVAPTAN
     Indication: Blood osmolarity decreased
  3. TOLVAPTAN [Suspect]
     Active Substance: TOLVAPTAN
     Indication: Antidiuretic hormone abnormality
  4. AMLODIPINE [Concomitant]
     Active Substance: AMLODIPINE BESYLATE
     Indication: Product used for unknown indication
     Dosage: 10 MG, UNK
     Route: 065
  5. AMLODIPINE [Concomitant]
     Active Substance: AMLODIPINE BESYLATE
     Dosage: 5 MG, UNK
     Route: 065

REACTIONS (10)
  - Seizure [Unknown]
  - Cardiac disorder [Unknown]
  - Inappropriate antidiuretic hormone secretion [Recovered/Resolved]
  - Electrolyte imbalance [Recovered/Resolved]
  - Sleep disorder [Unknown]
  - Blood sodium decreased [Recovered/Resolved]
  - Blood sodium decreased [Recovered/Resolved]
  - Pruritus [Unknown]
  - Incorrect product administration duration [Unknown]
  - Product use in unapproved indication [Unknown]

NARRATIVE: CASE EVENT DATE: 20190101
